FAERS Safety Report 8411764 (Version 7)
Quarter: 2012Q4

REPORT INFORMATION
  Report Type: 
  Country: US (occurrence: US)
  Receive Date: 20120217
  Receipt Date: 20121113
  Transmission Date: 20130627
  Serious: Yes (Hospitalization, Disabling, Other)
  Sender: FDA-Public Use
  Company Number: US-009507513-1202USA02464

PATIENT

DRUGS (5)
  1. FOSAMAX [Suspect]
     Indication: OSTEOPOROSIS
     Dosage: 70 mg, QW
     Route: 048
     Dates: start: 20010810, end: 20100301
  2. HORMONES (UNSPECIFIED) [Concomitant]
     Dates: start: 1995, end: 2001
  3. ZOCOR [Concomitant]
     Dosage: 40 mg, UNK
     Route: 048
  4. LIPITOR [Concomitant]
     Dosage: 20 mg, UNK
  5. PREMPRO [Concomitant]
     Indication: MENOPAUSE

REACTIONS (30)
  - Femur fracture [Recovered/Resolved]
  - Malignant melanoma [Unknown]
  - Low turnover osteopathy [Not Recovered/Not Resolved]
  - Tooth disorder [Unknown]
  - Type 2 diabetes mellitus [Unknown]
  - Diabetic neuropathy [Unknown]
  - Oropharyngeal pain [Unknown]
  - Sinusitis [Unknown]
  - Hypothyroidism [Unknown]
  - Skin lesion [Unknown]
  - Irritable bowel syndrome [Not Recovered/Not Resolved]
  - Diverticulitis [Unknown]
  - Tendonitis [Unknown]
  - Inner ear disorder [Unknown]
  - Osteopenia [Unknown]
  - Osteoarthritis [Not Recovered/Not Resolved]
  - Fall [Unknown]
  - Synovial cyst [Unknown]
  - Carpal tunnel syndrome [Unknown]
  - Breast disorder [Unknown]
  - Adnexa uteri mass [Unknown]
  - Lumbar spinal stenosis [Unknown]
  - Restless legs syndrome [Unknown]
  - Pain in extremity [Unknown]
  - Arthralgia [Unknown]
  - Drug ineffective [Unknown]
  - Constipation [Unknown]
  - Vertigo [Unknown]
  - Gastrooesophageal reflux disease [Unknown]
  - Gastrooesophageal reflux disease [Unknown]
